FAERS Safety Report 23507067 (Version 2)
Quarter: 2024Q1

REPORT INFORMATION
  Report Type: Spontaneous
  Country: CN (occurrence: CN)
  Receive Date: 20240209
  Receipt Date: 20240219
  Transmission Date: 20240409
  Serious: Yes (Other)
  Sender: FDA-Public Use
  Company Number: CN-JNJFOC-20240201730

PATIENT

DRUGS (13)
  1. SIRTURO [Suspect]
     Active Substance: BEDAQUILINE FUMARATE
     Indication: Tuberculosis
     Dosage: 400 MG/TIME, ONCE DAILY FOR THE FIRST 2 WEEKS, ALONG WITH DIETARY CONTROL; AFTER 2 WEEKS TREATMENT,
     Route: 048
  2. SIRTURO [Suspect]
     Active Substance: BEDAQUILINE FUMARATE
     Dosage: 400 MG/TIME, ONCE DAILY FOR THE FIRST 2 WEEKS, ALONG WITH DIETARY CONTROL; AFTER 2 WEEKS TREATMENT,
     Route: 048
  3. CYCLOSERINE [Suspect]
     Active Substance: CYCLOSERINE
     Indication: Tuberculosis
     Route: 065
  4. LINEZOLID [Suspect]
     Active Substance: LINEZOLID
     Indication: Tuberculosis
     Route: 065
  5. CLOFAZIMINE [Suspect]
     Active Substance: CLOFAZIMINE
     Indication: Tuberculosis
     Route: 065
  6. MOXIFLOXACIN [Suspect]
     Active Substance: MOXIFLOXACIN
     Indication: Tuberculosis
     Route: 065
  7. PROTIONAMIDE [Suspect]
     Active Substance: PROTIONAMIDE
     Indication: Tuberculosis
     Route: 065
  8. LEVOFLOXACIN [Suspect]
     Active Substance: LEVOFLOXACIN
     Indication: Tuberculosis
     Route: 065
  9. PYRAZINAMIDE [Suspect]
     Active Substance: PYRAZINAMIDE
     Indication: Tuberculosis
     Route: 065
  10. ETHAMBUTOL [Suspect]
     Active Substance: ETHAMBUTOL HYDROCHLORIDE
     Indication: Tuberculosis
     Route: 065
  11. AMIKACIN [Suspect]
     Active Substance: AMIKACIN
     Indication: Tuberculosis
     Route: 065
  12. SALICYLIC ACID [Suspect]
     Active Substance: SALICYLIC ACID
     Indication: Tuberculosis
     Route: 065
  13. CAPREOMYCIN [Suspect]
     Active Substance: CAPREOMYCIN
     Indication: Tuberculosis
     Route: 065

REACTIONS (28)
  - Hepatic failure [Unknown]
  - Electrocardiogram QT prolonged [Recovered/Resolved]
  - Renal failure [Unknown]
  - Syncope [Unknown]
  - Arrhythmia [Unknown]
  - Seizure [Unknown]
  - Hypothyroidism [Unknown]
  - Hypokalaemia [Unknown]
  - Drug ineffective [Unknown]
  - Anaemia [Unknown]
  - White blood cell count decreased [Unknown]
  - Dizziness [Unknown]
  - Hypersensitivity [Unknown]
  - Insomnia [Unknown]
  - Tinnitus [Unknown]
  - Vision blurred [Unknown]
  - Nausea [Unknown]
  - Hypoacusis [Unknown]
  - Visual acuity reduced [Unknown]
  - Restlessness [Unknown]
  - Fungal infection [Unknown]
  - Haemoptysis [Unknown]
  - Diarrhoea [Unknown]
  - Vomiting [Unknown]
  - Hyponatraemia [Unknown]
  - Arthralgia [Unknown]
  - Myalgia [Unknown]
  - Hypoaesthesia [Unknown]
